FAERS Safety Report 24875212 (Version 1)
Quarter: 2025Q1

REPORT INFORMATION
  Report Type: Spontaneous
  Country: US (occurrence: US)
  Receive Date: 20250122
  Receipt Date: 20250122
  Transmission Date: 20250408
  Serious: No
  Sender: LEXICON PHARMACEUTICALS
  Company Number: US-LEX-000617

PATIENT
  Age: 88 Year
  Sex: Male

DRUGS (9)
  1. INPEFA [Suspect]
     Active Substance: SOTAGLIFLOZIN
     Indication: Cardiac disorder
     Route: 048
     Dates: start: 20241217
  2. ISOSORBIDE [Concomitant]
     Active Substance: ISOSORBIDE
  3. LOSARTAN [Concomitant]
     Active Substance: LOSARTAN
  4. ALLOPURINOL [Concomitant]
     Active Substance: ALLOPURINOL
  5. FINASTERIDE [Concomitant]
     Active Substance: FINASTERIDE
  6. FUROSEMIDE [Concomitant]
     Active Substance: FUROSEMIDE
  7. ATORVASTATIN [Concomitant]
     Active Substance: ATORVASTATIN
  8. ELIQUIS [Concomitant]
     Active Substance: APIXABAN
  9. ASPIRIN [Concomitant]
     Active Substance: ASPIRIN

REACTIONS (1)
  - Diarrhoea [Unknown]

NARRATIVE: CASE EVENT DATE: 20241221
